FAERS Safety Report 4947385-5 (Version None)
Quarter: 2006Q1

REPORT INFORMATION
  Report Type: 
  Country: None (occurrence: None)
  Receive Date: 20060317
  Receipt Date: 20060314
  Transmission Date: 20060701
  Serious: Yes (Hospitalization)
  Sender: FDA-Public Use
  Company Number: AU-MERCK-0603AUS00096

PATIENT
  Age: 86 Year
  Sex: Male

DRUGS (12)
  1. FOSAMAX [Suspect]
     Indication: OSTEOPOROSIS
     Route: 048
     Dates: start: 20020101, end: 20050101
  2. FOSAMAX [Suspect]
     Route: 048
     Dates: start: 20050101
  3. IBUPROFEN [Concomitant]
     Indication: INFLAMMATION
     Route: 065
  4. FLUTICASONE PROPIONATE AND SALMETEROL XINAFOATE [Concomitant]
     Indication: ASTHMA
     Route: 065
  5. TIOTROPIUM BROMIDE [Concomitant]
     Indication: ASTHMA
     Route: 055
  6. ASPIRIN AND DIPYRIDAMOLE [Concomitant]
     Indication: ANTICOAGULANT THERAPY
     Route: 065
     Dates: start: 20010101
  7. VITAMIN B (UNSPECIFIED) [Concomitant]
     Route: 065
  8. VITAMIN A [Concomitant]
     Route: 065
  9. VITAMIN D (UNSPECIFIED) [Concomitant]
     Route: 065
  10. VITAMIN E [Concomitant]
     Route: 065
  11. FOLIC ACID [Concomitant]
     Route: 065
  12. PREDNISOLONE [Concomitant]
     Route: 065

REACTIONS (4)
  - HAEMATEMESIS [None]
  - INAPPROPRIATE SCHEDULE OF DRUG ADMINISTRATION [None]
  - OESOPHAGEAL DISORDER [None]
  - OESOPHAGITIS [None]
